FAERS Safety Report 17824967 (Version 1)
Quarter: 2020Q2

REPORT INFORMATION
  Report Type: Report from Study
  Country: US (occurrence: US)
  Receive Date: 20200526
  Receipt Date: 20200526
  Transmission Date: 20200714
  Serious: No
  Sender: FDA-Public Use
  Company Number: NVSC2017US009083

PATIENT
  Sex: Male

DRUGS (9)
  1. CROMOLYN SODIUM. [Suspect]
     Active Substance: CROMOLYN SODIUM
     Indication: EYE ALLERGY
     Dosage: UNK
     Route: 065
  2. CROMOLYN SODIUM. [Suspect]
     Active Substance: CROMOLYN SODIUM
     Indication: OCULAR DISCOMFORT
  3. KETOTIFEN [Suspect]
     Active Substance: KETOTIFEN
     Indication: EYE ALLERGY
     Dosage: UNK
     Route: 065
  4. KETOTIFEN [Suspect]
     Active Substance: KETOTIFEN
     Indication: OCULAR DISCOMFORT
  5. CROMOLYN SODIUM. [Suspect]
     Active Substance: CROMOLYN SODIUM
     Indication: PRURITUS
  6. KETOTIFEN [Suspect]
     Active Substance: KETOTIFEN
     Indication: PRURITUS
  7. ALAWAY [Concomitant]
     Active Substance: KETOTIFEN FUMARATE
     Indication: PRURITUS
  8. ALAWAY [Concomitant]
     Active Substance: KETOTIFEN FUMARATE
     Indication: EYE ALLERGY
     Dosage: UNK
     Route: 065
  9. ALAWAY [Concomitant]
     Active Substance: KETOTIFEN FUMARATE
     Indication: OCULAR DISCOMFORT

REACTIONS (1)
  - Treatment failure [Unknown]
